FAERS Safety Report 14612819 (Version 1)
Quarter: 2018Q1

REPORT INFORMATION
  Report Type: Other
  Country: FR (occurrence: FR)
  Receive Date: 20180308
  Receipt Date: 20180308
  Transmission Date: 20180509
  Serious: Yes (Death, Other)
  Sender: FDA-Public Use
  Company Number: FR-TAKEDA-2018TEU001244

PATIENT
  Age: 70 Year
  Sex: Female
  Weight: 90 kg

DRUGS (21)
  1. LANSOPRAZOLE. [Suspect]
     Active Substance: LANSOPRAZOLE
     Indication: PRODUCT USED FOR UNKNOWN INDICATION
     Dosage: 30 MG, QD
     Route: 065
     Dates: start: 20160418
  2. XANAX [Concomitant]
     Active Substance: ALPRAZOLAM
     Dosage: UNK
  3. ASPEGIC [Concomitant]
     Active Substance: ASPIRIN DL-LYSINE
     Dosage: 100 MG, QD
  4. COTAREG [Concomitant]
     Active Substance: HYDROCHLOROTHIAZIDE\VALSARTAN
     Dosage: UNK UNK, QD
  5. COLCHICINE. [Suspect]
     Active Substance: COLCHICINE
     Indication: FAMILIAL MEDITERRANEAN FEVER
     Dosage: 3 MG, 1/WEEK
     Route: 048
     Dates: start: 20160406, end: 20160412
  6. LYSANXIA [Concomitant]
     Active Substance: PRAZEPAM
     Dosage: UNK
  7. MONOTILDIEM [Concomitant]
     Active Substance: DILTIAZEM
     Dosage: 200 MG, BID
  8. METFORMINE [Concomitant]
     Active Substance: METFORMIN HYDROCHLORIDE
     Dosage: 850 MG, TID
  9. COLCHICINE. [Suspect]
     Active Substance: COLCHICINE
     Dosage: 2 MG, QD
     Route: 048
     Dates: start: 20160419, end: 20160422
  10. HARVONI [Suspect]
     Active Substance: LEDIPASVIR\SOFOSBUVIR
     Indication: CHRONIC HEPATITIS C
     Dosage: UNK UNK, QD
     Route: 048
     Dates: start: 20160125, end: 20160417
  11. SIMVASTATINE [Concomitant]
     Active Substance: SIMVASTATIN
     Dosage: 20 MG, QD
  12. SPASFON                            /00765801/ [Concomitant]
     Active Substance: PHLOROGLUCINOL\1,3,5-TRIMETHOXYBENZENE
     Dosage: UNK
  13. PARACETAMOL [Concomitant]
     Active Substance: ACETAMINOPHEN
     Dosage: UNK
  14. MAG 2                              /01486821/ [Suspect]
     Active Substance: MAGNESIUM PIDOLATE
     Indication: PRODUCT USED FOR UNKNOWN INDICATION
     Dosage: UNK
     Route: 065
  15. LASILIX                            /00032601/ [Suspect]
     Active Substance: FUROSEMIDE
     Indication: PRODUCT USED FOR UNKNOWN INDICATION
     Dosage: 40 MG, QD
     Route: 065
  16. ATARAX [Concomitant]
     Active Substance: HYDROXYZINE HYDROCHLORIDE
     Dosage: 100 MG, QD
  17. STILNOX [Concomitant]
     Active Substance: ZOLPIDEM TARTRATE
     Dosage: UNK
  18. MOLSIDOMINE [Concomitant]
     Active Substance: MOLSIDOMINE
     Dosage: 2 MG, TID
  19. FORTIMEL [Concomitant]
     Active Substance: DIETARY SUPPLEMENT
     Dosage: UNK
  20. LEXOMIL [Concomitant]
     Active Substance: BROMAZEPAM
     Dosage: UNK UNK, TID
  21. TRAMADOL. [Concomitant]
     Active Substance: TRAMADOL
     Dosage: UNK

REACTIONS (10)
  - Bone marrow failure [Fatal]
  - Vomiting [Fatal]
  - Pyrexia [Fatal]
  - Diarrhoea [Fatal]
  - Toxicity to various agents [Fatal]
  - Renal failure [Fatal]
  - Pancytopenia [Fatal]
  - Dehydration [Fatal]
  - Septic shock [Fatal]
  - Coma [Fatal]

NARRATIVE: CASE EVENT DATE: 20160401
